FAERS Safety Report 16522324 (Version 1)
Quarter: 2019Q3

REPORT INFORMATION
  Report Type: Spontaneous
  Country: US (occurrence: US)
  Receive Date: 20190703
  Receipt Date: 20190703
  Transmission Date: 20191004
  Serious: No
  Sender: FDA-Public Use
  Company Number: US-PFIZER INC-2019280836

PATIENT
  Age: 79 Year
  Sex: Female
  Weight: 91 kg

DRUGS (3)
  1. MEDROL [Suspect]
     Active Substance: METHYLPREDNISOLONE
     Dosage: UNK
  2. TYVASO [Suspect]
     Active Substance: TREPROSTINIL
     Indication: HYPERTENSION
     Dosage: UNK, 4X/DAY (0.6G/ML, 3-9 BREATHS INHALED)
     Route: 055
     Dates: start: 20190508
  3. AMLODIPINE [Concomitant]
     Active Substance: AMLODIPINE BESYLATE
     Dosage: UNK

REACTIONS (11)
  - Dizziness [Unknown]
  - Musculoskeletal pain [Unknown]
  - Hypoaesthesia [Unknown]
  - Cough [Unknown]
  - Nasal disorder [Unknown]
  - Pain in extremity [Not Recovered/Not Resolved]
  - Abdominal discomfort [Unknown]
  - Dry throat [Unknown]
  - Anaemia [Recovering/Resolving]
  - Blood creatinine increased [Unknown]
  - Fall [Unknown]
